FAERS Safety Report 25333431 (Version 2)
Quarter: 2025Q2

REPORT INFORMATION
  Report Type: Spontaneous
  Country: CN (occurrence: CN)
  Receive Date: 20250520
  Receipt Date: 20250618
  Transmission Date: 20250716
  Serious: Yes (Other)
  Sender: AMGEN
  Company Number: CN-AMGEN-CHNSP2025095404

PATIENT
  Age: 39 Year
  Sex: Female

DRUGS (4)
  1. ROMIPLOSTIM [Suspect]
     Active Substance: ROMIPLOSTIM
     Indication: Thrombocytopenia
     Route: 065
  2. XGEVA [Suspect]
     Active Substance: DENOSUMAB
     Indication: Metastases to bone
     Route: 065
     Dates: start: 202406
  3. PACLITAXEL [Concomitant]
     Active Substance: PACLITAXEL
     Indication: Triple negative breast cancer
     Dosage: 120 MILLIGRAM, QWK
     Route: 040
     Dates: start: 20240610
  4. RAFUTROMBOPAG [Concomitant]
     Active Substance: RAFUTROMBOPAG
     Indication: Thrombocytopenia

REACTIONS (5)
  - Breast cancer metastatic [Unknown]
  - Refeeding syndrome [Unknown]
  - Malnutrition [Unknown]
  - Weight decreased [Unknown]
  - Off label use [Unknown]

NARRATIVE: CASE EVENT DATE: 20250101
